FAERS Safety Report 21257310 (Version 2)
Quarter: 2022Q4

REPORT INFORMATION
  Report Type: Spontaneous
  Country: US (occurrence: US)
  Receive Date: 20220826
  Receipt Date: 20221018
  Transmission Date: 20230113
  Serious: Yes (Other)
  Sender: FDA-Public Use
  Company Number: US-Merck Healthcare KGaA-9346211

PATIENT
  Sex: Female

DRUGS (3)
  1. CETROTIDE [Suspect]
     Active Substance: CETRORELIX ACETATE
     Indication: Infertility female
  2. GONAL-F [Suspect]
     Active Substance: FOLLITROPIN
     Indication: Infertility female
  3. MENOPUR [Concomitant]
     Active Substance: FOLLITROPIN\LUTEINIZING HORMONE
     Indication: Product used for unknown indication

REACTIONS (2)
  - Deafness unilateral [Not Recovered/Not Resolved]
  - Tension headache [Not Recovered/Not Resolved]
